FAERS Safety Report 5460578-6 (Version None)
Quarter: 2007Q3

REPORT INFORMATION
  Report Type: 
  Country: None (occurrence: None)
  Receive Date: 20070919
  Receipt Date: 20070904
  Transmission Date: 20080115
  Serious: Yes (Other)
  Sender: FDA-Public Use
  Company Number: BR-PFIZER INC-2007063041

PATIENT
  Sex: Female
  Weight: 69 kg

DRUGS (3)
  1. CHAMPIX [Suspect]
     Indication: SMOKING CESSATION THERAPY
     Route: 048
     Dates: start: 20070601, end: 20070712
  2. CHAMPIX [Suspect]
     Indication: TOBACCO ABUSE
  3. ALL OTHER THERAPEUTIC PRODUCTS [Concomitant]
     Indication: MENOPAUSE

REACTIONS (5)
  - COUGH [None]
  - DYSPNOEA [None]
  - SINUSITIS [None]
  - TACHYCARDIA [None]
  - WEIGHT INCREASED [None]
